FAERS Safety Report 4650881-1 (Version None)
Quarter: 2005Q2

REPORT INFORMATION
  Report Type: 
  Country: None (occurrence: None)
  Receive Date: 20050428
  Receipt Date: 20050428
  Transmission Date: 20051028
  Serious: Yes (Disabling)
  Sender: FDA-Public Use
  Company Number: None

PATIENT
  Sex: Female
  Weight: 113.3993 kg

DRUGS (8)
  1. FACTIVE [Suspect]
     Indication: RESPIRATORY DISORDER
     Dosage: 1 TABLET DAILY, ORALLY
     Route: 048
     Dates: start: 20050117
  2. WARFARIN [Concomitant]
  3. AMIODARONE HCL [Concomitant]
  4. CARDIZEM [Concomitant]
  5. CLONIDINE [Concomitant]
  6. ALBUTEROL [Concomitant]
  7. MULTI-VITAMIN [Concomitant]
  8. GARLIC TABLETS. [Concomitant]

REACTIONS (16)
  - BLISTER [None]
  - DRY SKIN [None]
  - DYSGEUSIA [None]
  - ERYTHEMA [None]
  - GLOSSODYNIA [None]
  - HEADACHE [None]
  - INSOMNIA [None]
  - NEUROPATHY PERIPHERAL [None]
  - PHOTOSENSITIVITY REACTION [None]
  - PRURITUS [None]
  - RETCHING [None]
  - SCAR [None]
  - SKIN BURNING SENSATION [None]
  - SKIN DISORDER [None]
  - TREMOR [None]
  - URTICARIA [None]
